FAERS Safety Report 8225002-9 (Version None)
Quarter: 2012Q1

REPORT INFORMATION
  Report Type: 
  Country: None (occurrence: None)
  Receive Date: 20120319
  Receipt Date: 20120301
  Transmission Date: 20120608
  Serious: Yes (Death)
  Sender: FDA-Public Use
  Company Number: DSA_55686_2012

PATIENT
  Age: 70 Year
  Sex: Male

DRUGS (15)
  1. ROCEPHIN [Concomitant]
  2. ASPEGIC 1000 [Concomitant]
  3. FOSFOCINE [Concomitant]
  4. NEXIUM [Concomitant]
  5. KEPPRA [Concomitant]
  6. GENTAMICIN [Concomitant]
  7. SANDIMMUNE [Suspect]
     Indication: PROPHYLAXIS AGAINST TRANSPLANT REJECTION
     Dosage: (DF)
     Dates: start: 20110701, end: 20120203
  8. PHOSPHORE /00859901/ [Concomitant]
  9. TACROLIMUS [Concomitant]
  10. OXACILLIN [Suspect]
     Indication: LIVER ABSCESS
     Dosage: 2 G TID INTRAVENOUS (NOT OTHERWISE SPECIFIED)), (2 G TID INTRAVENOUS (NOT OTHERWISE SPECIFIED))
     Route: 042
     Dates: start: 20120103, end: 20120125
  11. OXACILLIN [Suspect]
     Indication: LIVER ABSCESS
     Dosage: 2 G TID INTRAVENOUS (NOT OTHERWISE SPECIFIED)), (2 G TID INTRAVENOUS (NOT OTHERWISE SPECIFIED))
     Route: 042
     Dates: start: 20111226, end: 20111231
  12. PIPERACILLIN AND TAZOBACTAM [Concomitant]
  13. PREDNISONE TAB [Concomitant]
  14. FLAGYL [Suspect]
     Indication: LIVER ABSCESS
     Dates: start: 20111226, end: 20120125
  15. URBANYL [Concomitant]

REACTIONS (15)
  - RESPIRATORY DISORDER [None]
  - MIOSIS [None]
  - ENCEPHALOPATHY [None]
  - MYOCLONUS [None]
  - SOMNOLENCE [None]
  - METABOLIC DISORDER [None]
  - PANCYTOPENIA [None]
  - CONDITION AGGRAVATED [None]
  - NEUROLOGICAL SYMPTOM [None]
  - DISTURBANCE IN ATTENTION [None]
  - TREMOR [None]
  - APHASIA [None]
  - NO THERAPEUTIC RESPONSE [None]
  - OXYGEN SATURATION DECREASED [None]
  - BULBAR PALSY [None]
